FAERS Safety Report 7008918-0 (Version None)
Quarter: 2010Q3

REPORT INFORMATION
  Report Type: 
  Country: None (occurrence: None)
  Receive Date: 20100923
  Receipt Date: 20100723
  Transmission Date: 20110219
  Serious: No
  Sender: FDA-Public Use
  Company Number: US-ASTRAZENECA-2009UW17746

PATIENT
  Age: 31 Year
  Sex: Male
  Weight: 127 kg

DRUGS (6)
  1. SEROQUEL [Suspect]
     Indication: BIPOLAR DISORDER
     Dosage: 50 MG PO Q AM AND 300 MG Q HS
     Route: 048
     Dates: start: 20001219
  2. SEROQUEL [Suspect]
     Indication: MANIA
     Dosage: 50 MG PO Q AM AND 300 MG Q HS
     Route: 048
     Dates: start: 20001219
  3. SEROQUEL [Suspect]
     Route: 048
     Dates: start: 20000101, end: 20060101
  4. SEROQUEL [Suspect]
     Route: 048
     Dates: start: 20000101, end: 20060101
  5. EFFEXOR [Concomitant]
     Dosage: 75 MG PO Q AM AND 225 MG Q HS
     Route: 048
     Dates: start: 20001219
  6. CELEXA [Concomitant]
     Route: 048
     Dates: start: 20001219

REACTIONS (4)
  - BLOOD CHOLESTEROL INCREASED [None]
  - HYPERLIPIDAEMIA [None]
  - OBESITY [None]
  - TYPE 2 DIABETES MELLITUS [None]
